FAERS Safety Report 6438285-2 (Version None)
Quarter: 2009Q4

REPORT INFORMATION
  Report Type: 
  Country: None (occurrence: None)
  Receive Date: 20091112
  Receipt Date: 20091103
  Transmission Date: 20100525
  Serious: Yes (Hospitalization)
  Sender: FDA-Public Use
  Company Number: PHHY2009MX48523

PATIENT
  Age: 29 Year
  Sex: Female

DRUGS (2)
  1. TRILEPTAL [Suspect]
     Indication: EPILEPSY
     Dosage: 600 MG 2 TABLETS PER DAY
     Dates: start: 20090901
  2. ATEMPERATOR                             /CHL/ [Concomitant]
     Dosage: 3 TABLETS
     Route: 048
     Dates: start: 20060901

REACTIONS (1)
  - SURGERY [None]
